FAERS Safety Report 12302735 (Version 2)
Quarter: 2016Q4

REPORT INFORMATION
  Report Type: Report from Study
  Country: CA (occurrence: CA)
  Receive Date: 20160425
  Receipt Date: 20161221
  Transmission Date: 20170207
  Serious: Yes (Other)
  Sender: FDA-Public Use
  Company Number: CA-AMGEN-CANSL2016050875

PATIENT
  Age: 71 Year
  Sex: Male

DRUGS (1)
  1. ENBREL [Suspect]
     Active Substance: ETANERCEPT
     Indication: PSORIATIC ARTHROPATHY
     Dosage: 50 MG, UNK
     Route: 065
     Dates: start: 20160107

REACTIONS (6)
  - Diabetes mellitus [Unknown]
  - Blood cholesterol increased [Unknown]
  - Psoriasis [Unknown]
  - Peripheral venous disease [Unknown]
  - Overweight [Unknown]
  - Exercise lack of [Unknown]

NARRATIVE: CASE EVENT DATE: 2016
